FAERS Safety Report 7675383-X (Version None)
Quarter: 2011Q3

REPORT INFORMATION
  Report Type: 
  Country: None (occurrence: None)
  Receive Date: 20110810
  Receipt Date: 20110808
  Transmission Date: 20111222
  Serious: Yes (Hospitalization)
  Sender: FDA-Public Use
  Company Number: JP-PFIZER INC-2011181616

PATIENT
  Age: 85 Year
  Sex: Male

DRUGS (2)
  1. LYRICA [Suspect]
     Dosage: 25 MG, ALTERNATE DAY
     Route: 048
  2. LYRICA [Suspect]
     Indication: POST HERPETIC NEURALGIA
     Dosage: 25 MG DAILY
     Route: 048

REACTIONS (2)
  - CEREBRAL HAEMORRHAGE [None]
  - DIARRHOEA [None]
